FAERS Safety Report 17214770 (Version 1)
Quarter: 2019Q4

REPORT INFORMATION
  Report Type: Report from Study
  Country: DE (occurrence: DE)
  Receive Date: 20191230
  Receipt Date: 20191230
  Transmission Date: 20200122
  Serious: Yes (Other)
  Sender: FDA-Public Use
  Company Number: DE-MYLANLABS-2019M1128443

PATIENT
  Age: 9 Decade
  Sex: Female
  Weight: 49 kg

DRUGS (8)
  1. DOCETAXEL. [Suspect]
     Active Substance: DOCETAXEL
     Indication: BREAST CANCER FEMALE
     Dosage: 110 MILLIGRAM, Q3W (LAST DOSE 02-APR-2014)
     Route: 042
     Dates: start: 20140226
  2. DEXAMETHASONE. [Concomitant]
     Active Substance: DEXAMETHASONE
     Dosage: 4 MILLIGRAM, Q3W
     Route: 042
     Dates: start: 20140226, end: 20140430
  3. CARBOPLATIN. [Suspect]
     Active Substance: CARBOPLATIN
     Indication: BREAST CANCER FEMALE
     Dosage: 450 MILLIGRAM, Q3W (LAST DOSE 02-APR-2014)
     Route: 042
     Dates: start: 20140226
  4. LONQUEX [Suspect]
     Active Substance: LIPEGFILGRASTIM
     Indication: NEUTROPENIA
     Dosage: UNK UNK, CYCLE (LAST DOSE 02-APR-2014)
     Dates: start: 20140227
  5. RANITIDINE. [Concomitant]
     Active Substance: RANITIDINE
     Dosage: 50 MILLIGRAM, Q3W
     Route: 042
     Dates: start: 20140226, end: 20140430
  6. ONDANSETRON [Concomitant]
     Active Substance: ONDANSETRON
     Dosage: 8 MILLIGRAM, Q3W
     Route: 042
     Dates: start: 20140226, end: 20140430
  7. CLEMASTINE [Concomitant]
     Active Substance: CLEMASTINE
     Dosage: 2 MILLIGRAM, Q3W
     Route: 042
     Dates: start: 20140226, end: 20140430
  8. TRASTUZUMAB. [Suspect]
     Active Substance: TRASTUZUMAB
     Indication: BREAST CANCER FEMALE
     Dosage: 290 MILLIGRAM, Q3W (LAST DOSE 02-APR-2014)
     Route: 042
     Dates: start: 20140226

REACTIONS (2)
  - Thrombocytopenia [Unknown]
  - Leukocytosis [Recovered/Resolved]

NARRATIVE: CASE EVENT DATE: 20140423
